FAERS Safety Report 19458185 (Version 4)
Quarter: 2021Q4

REPORT INFORMATION
  Report Type: Report from Study
  Country: CA (occurrence: CA)
  Receive Date: 20210624
  Receipt Date: 20211008
  Transmission Date: 20220303
  Serious: Yes (Hospitalization, Other)
  Sender: FDA-Public Use
  Company Number: CA-JNJFOC-20210645014

PATIENT
  Age: 17 Year
  Sex: Female
  Weight: 65 kg

DRUGS (1)
  1. REMICADE [Suspect]
     Active Substance: INFLIXIMAB
     Indication: Crohn^s disease
     Dosage: PATIENT RECEIVED (54TH) DOSE OF INFLIXIMAB, RECOMBINANT INJECTION ON 19-JUN-2021
     Route: 042
     Dates: start: 20150401

REACTIONS (8)
  - Sepsis [Recovered/Resolved]
  - Haematochezia [Unknown]
  - Kidney infection [Recovered/Resolved]
  - Wisdom teeth removal [Unknown]
  - Heart rate irregular [Unknown]
  - Urinary tract infection [Recovered/Resolved]
  - Abdominal pain [Not Recovered/Not Resolved]
  - Drug ineffective [Unknown]

NARRATIVE: CASE EVENT DATE: 20210506
